FAERS Safety Report 24403991 (Version 1)
Quarter: 2024Q4

REPORT INFORMATION
  Report Type: Spontaneous
  Country: PT (occurrence: PT)
  Receive Date: 20241007
  Receipt Date: 20241007
  Transmission Date: 20250114
  Serious: Yes (Hospitalization)
  Sender: ORGANON
  Company Number: None

PATIENT
  Age: 74 Year
  Sex: Male

DRUGS (5)
  1. SIMVASTATIN [Suspect]
     Active Substance: SIMVASTATIN
     Dosage: UNK
  2. NEBIVOLOL [Suspect]
     Active Substance: NEBIVOLOL
     Dosage: UNK
  3. ASPIRIN [Suspect]
     Active Substance: ASPIRIN
     Dosage: UNK
  4. VALSARTAN [Suspect]
     Active Substance: VALSARTAN
     Dosage: UNK
  5. METFORMIN [Suspect]
     Active Substance: METFORMIN HYDROCHLORIDE
     Dosage: UNK

REACTIONS (2)
  - Immune-mediated myositis [Recovering/Resolving]
  - Respiratory failure [Recovering/Resolving]
